FAERS Safety Report 5197162-8 (Version None)
Quarter: 2007Q1

REPORT INFORMATION
  Report Type: 
  Country: None (occurrence: None)
  Receive Date: 20070103
  Receipt Date: 20061229
  Transmission Date: 20070707
  Serious: Yes (Hospitalization)
  Sender: FDA-Public Use
  Company Number: JP-GLAXOSMITHKLINE-B0451907A

PATIENT
  Age: 74 Year
  Sex: Male

DRUGS (4)
  1. SEREVENT [Suspect]
     Indication: ASTHMA
     Dosage: 50MCG TWICE PER DAY
     Route: 055
     Dates: start: 20061119
  2. KIPRES [Concomitant]
     Route: 048
  3. HOKUNALIN [Concomitant]
     Route: 062
  4. FLUTIDE [Concomitant]
     Route: 055

REACTIONS (1)
  - PNEUMOTHORAX [None]
